FAERS Safety Report 19981199 (Version 1)
Quarter: 2021Q4

REPORT INFORMATION
  Report Type: Spontaneous
  Country: CN (occurrence: CN)
  Receive Date: 20211021
  Receipt Date: 20211021
  Transmission Date: 20220303
  Serious: Yes (Hospitalization, Other)
  Sender: FDA-Public Use
  Company Number: CN-PFIZER INC-202101368725

PATIENT
  Age: 68 Year
  Sex: Male
  Weight: 71 kg

DRUGS (4)
  1. CYTARABINE [Suspect]
     Active Substance: CYTARABINE
     Indication: Myelodysplastic syndrome
     Dosage: 15 MG, 2X/DAY
     Route: 058
     Dates: start: 20210910, end: 20210916
  2. AZACITIDINE [Suspect]
     Active Substance: AZACITIDINE
     Indication: Myelodysplastic syndrome
     Dosage: 100 MG, 1X/DAY
     Route: 058
     Dates: start: 20210907, end: 20210913
  3. OMACETAXINE MEPESUCCINATE [Suspect]
     Active Substance: OMACETAXINE MEPESUCCINATE
     Indication: Myelodysplastic syndrome
     Dosage: 2 MG, 1X/DAY
     Route: 041
     Dates: start: 20210910, end: 20210913
  4. DEXTROSE [Concomitant]
     Active Substance: DEXTROSE
     Indication: Vehicle solution use
     Dosage: 500 ML, 1X/DAY
     Route: 041
     Dates: start: 20210910, end: 20210913

REACTIONS (2)
  - Full blood count decreased [Recovering/Resolving]
  - Ecchymosis [Unknown]

NARRATIVE: CASE EVENT DATE: 20210913
